FAERS Safety Report 22197903 (Version 1)
Quarter: 2023Q2

REPORT INFORMATION
  Report Type: Spontaneous
  Country: US (occurrence: None)
  Receive Date: 20230411
  Receipt Date: 20230411
  Transmission Date: 20230722
  Serious: No
  Sender: FDA-Public Use
  Company Number: None

PATIENT
  Age: 64 Year
  Sex: Female
  Weight: 96.75 kg

DRUGS (6)
  1. BENZONATATE [Suspect]
     Active Substance: BENZONATATE
     Indication: Cough
     Dosage: FREQUENCY : DAILY;?
     Route: 048
     Dates: start: 20230409, end: 20230411
  2. PRAVASTATIN [Concomitant]
     Active Substance: PRAVASTATIN
  3. ALBUTEROL [Concomitant]
     Active Substance: ALBUTEROL
  4. VITAMIN D [Concomitant]
     Active Substance: VITAMIN D NOS
  5. Mulivitamin [Concomitant]
  6. Zurtec [Concomitant]

REACTIONS (1)
  - Rash erythematous [None]

NARRATIVE: CASE EVENT DATE: 20230410
